FAERS Safety Report 8859021 (Version 1)
Quarter: 2012Q4

REPORT INFORMATION
  Report Type: Spontaneous
  Country: US (occurrence: None)
  Receive Date: 20121023
  Receipt Date: 20121023
  Transmission Date: 20130627
  Serious: Yes (Other)
  Sender: FDA-Public Use
  Company Number: US-TORRENT-00000440

PATIENT
  Sex: Female

DRUGS (1)
  1. DONEPEZIL HYDROCHLORIDE [Suspect]

REACTIONS (5)
  - Dizziness [None]
  - Fall [None]
  - Balance disorder [None]
  - Pain [None]
  - Fracture [None]
